FAERS Safety Report 5881252-8 (Version None)
Quarter: 2008Q3

REPORT INFORMATION
  Report Type: 
  Country: None (occurrence: None)
  Receive Date: 20080912
  Receipt Date: 20080710
  Transmission Date: 20090109
  Serious: No
  Sender: FDA-Public Use
  Company Number: US-ABBOTT-08P-163-0459300-00

PATIENT
  Sex: Female
  Weight: 66.284 kg

DRUGS (2)
  1. HUMIRA [Suspect]
     Indication: RHEUMATOID ARTHRITIS
     Route: 058
     Dates: start: 20080606
  2. METHOTREXATE [Concomitant]
     Indication: RHEUMATOID ARTHRITIS
     Dosage: 8-2.5 MG TABLETS, 1 IN 1 W
     Route: 048
     Dates: start: 20030101

REACTIONS (2)
  - ACCIDENTAL EXPOSURE [None]
  - DRUG ADMINISTERED AT INAPPROPRIATE SITE [None]
